FAERS Safety Report 20286391 (Version 2)
Quarter: 2022Q1

REPORT INFORMATION
  Report Type: Report from Study
  Country: JP (occurrence: JP)
  Receive Date: 20220103
  Receipt Date: 20220114
  Transmission Date: 20220424
  Serious: Yes (Hospitalization)
  Sender: FDA-Public Use
  Company Number: JP-ONO-2021JP030098

PATIENT
  Age: 64 Year
  Sex: Female
  Weight: 51.2 kg

DRUGS (6)
  1. NIVOLUMAB [Suspect]
     Active Substance: NIVOLUMAB
     Indication: Pancreatic carcinoma
     Dosage: 480 MILLIGRAM, Q4WK
     Route: 041
     Dates: start: 20211028, end: 20211028
  2. GIMERACIL\OTERACIL\TEGAFUR [Suspect]
     Active Substance: GIMERACIL\OTERACIL\TEGAFUR
     Indication: Pancreatic carcinoma
     Dosage: 60 MILLIGRAM, Q12H ON THE DAY OF RADIATION
     Route: 048
     Dates: start: 20211028, end: 20211125
  3. VONOPRAZAN FUMARATE [Concomitant]
     Active Substance: VONOPRAZAN FUMARATE
     Indication: Prophylaxis against gastrointestinal ulcer
     Dosage: 20 MILLIGRAM, QD
     Route: 048
  4. CALONAL [Concomitant]
     Active Substance: ACETAMINOPHEN
     Indication: Pancreatic carcinoma
     Dosage: 2000 MILLIGRAM, QD
     Route: 048
     Dates: start: 20211101, end: 20211201
  5. CAMOSTAT MESYLATE [Concomitant]
     Active Substance: CAMOSTAT MESYLATE
     Indication: Pancreatic carcinoma
     Dosage: 600 MILLIGRAM, QD
     Route: 048
  6. HEPARINOID [Concomitant]
     Indication: Skin disorder prophylaxis
     Dosage: UNK, QD
     Route: 061

REACTIONS (1)
  - Mucosal disorder [Recovering/Resolving]

NARRATIVE: CASE EVENT DATE: 20211125
